FAERS Safety Report 4886211-X (Version None)
Quarter: 2006Q1

REPORT INFORMATION
  Report Type: 
  Country: None (occurrence: None)
  Receive Date: 20060118
  Receipt Date: 20060111
  Transmission Date: 20060701
  Serious: Yes (Other)
  Sender: FDA-Public Use
  Company Number: USA-2006-0022167

PATIENT
  Age: 68 Year
  Sex: Female

DRUGS (9)
  1. OXYCONTIN [Suspect]
     Indication: BACK PAIN
  2. LIDOCAINE [Suspect]
     Dosage: DAILY, TOPICAL
     Route: 061
  3. ASPIRIN [Concomitant]
  4. CORTISONE ACETATE [Concomitant]
  5. VITAMIN B12 [Concomitant]
  6. HEAT [Concomitant]
  7. FOLIC ACID [Concomitant]
  8. ALDACTONE [Concomitant]
  9. VITAMINS [Concomitant]

REACTIONS (16)
  - ANGER [None]
  - ANOREXIA [None]
  - DISTURBANCE IN ATTENTION [None]
  - DRUG DEPENDENCE [None]
  - DYSARTHRIA [None]
  - FEELING ABNORMAL [None]
  - GAIT DISTURBANCE [None]
  - HEAD DISCOMFORT [None]
  - INCOHERENT [None]
  - INTENTIONAL DRUG MISUSE [None]
  - NAUSEA [None]
  - NECK PAIN [None]
  - PARANOIA [None]
  - SUICIDAL IDEATION [None]
  - TREATMENT NONCOMPLIANCE [None]
  - WEIGHT DECREASED [None]
